FAERS Safety Report 23384013 (Version 5)
Quarter: 2024Q4

REPORT INFORMATION
  Report Type: Report from Study
  Country: US (occurrence: US)
  Receive Date: 20240109
  Receipt Date: 20241113
  Transmission Date: 20250115
  Serious: Yes (Other)
  Sender: UCB
  Company Number: US-UCBSA-2024000706

PATIENT
  Age: 39 Year
  Sex: Female
  Weight: 86.12 kg

DRUGS (2)
  1. MIDAZOLAM [Suspect]
     Active Substance: MIDAZOLAM
     Indication: Seizure
     Dosage: 5 MILLIGRAM AS NEEDED
  2. MIDAZOLAM [Suspect]
     Active Substance: MIDAZOLAM
     Dosage: 50 MILLIGRAM PER MILLILITRE
     Route: 045

REACTIONS (6)
  - Seizure [Unknown]
  - Seizure cluster [Recovered/Resolved]
  - Therapy interrupted [Unknown]
  - Product availability issue [Unknown]
  - Device issue [Unknown]
  - Drug delivery system issue [Unknown]

NARRATIVE: CASE EVENT DATE: 20231201
